FAERS Safety Report 17895671 (Version 1)
Quarter: 2020Q2

REPORT INFORMATION
  Report Type: Spontaneous
  Country: US (occurrence: US)
  Receive Date: 20200611
  Receipt Date: 20200611
  Transmission Date: 20200714
  Serious: Yes (Death)
  Sender: FDA-Public Use
  Company Number: None

PATIENT
  Age: 0 Day
  Sex: Female
  Weight: 2.9 kg

DRUGS (2)
  1. GOLDENSEAL ROOT POWDER [Suspect]
     Active Substance: HERBALS\HOMEOPATHICS\GOLDENSEAL
     Indication: WOUND TREATMENT
     Route: 061
     Dates: start: 20200602, end: 20200607
  2. DOTERRA MYRRH [Concomitant]
     Dates: start: 20200602, end: 20200607

REACTIONS (6)
  - Haemophilus test positive [None]
  - Clostridium test positive [None]
  - Omphalitis [None]
  - Staphylococcus test positive [None]
  - Product contamination microbial [None]
  - Application site infection [None]

NARRATIVE: CASE EVENT DATE: 20200607
